FAERS Safety Report 5375063-X (Version None)
Quarter: 2007Q2

REPORT INFORMATION
  Report Type: 
  Country: None (occurrence: None)
  Receive Date: 20070629
  Receipt Date: 20070522
  Transmission Date: 20071010
  Serious: No
  Sender: FDA-Public Use
  Company Number: A0652441A

PATIENT
  Age: 70 Year
  Sex: Female

DRUGS (4)
  1. AVANDARYL [Suspect]
     Dosage: 1TAB PER DAY
     Route: 048
     Dates: start: 20061101
  2. METFORMIN HCL [Concomitant]
  3. PRINIVIL [Concomitant]
  4. THIORIDAZINE HCL [Concomitant]

REACTIONS (3)
  - GAIT DISTURBANCE [None]
  - GENERALISED OEDEMA [None]
  - OEDEMA PERIPHERAL [None]
